FAERS Safety Report 7678490-0 (Version None)
Quarter: 2011Q3

REPORT INFORMATION
  Report Type: 
  Country: None (occurrence: None)
  Receive Date: 20110811
  Receipt Date: 20110803
  Transmission Date: 20111222
  Serious: Yes (Other)
  Sender: FDA-Public Use
  Company Number: NL-BAXTER-2011BH025662

PATIENT
  Age: 56 Year
  Sex: Female

DRUGS (3)
  1. GAMMAGARD LIQUID [Suspect]
     Indication: MULTIFOCAL MOTOR NEUROPATHY
     Route: 065
     Dates: start: 20061012
  2. GAMMAGARD LIQUID [Suspect]
     Route: 065
     Dates: start: 20110721
  3. GAMMAGARD LIQUID [Suspect]
     Route: 065
     Dates: start: 20110715

REACTIONS (1)
  - SKIN BACTERIAL INFECTION [None]
